FAERS Safety Report 5405783-X (Version None)
Quarter: 2007Q3

REPORT INFORMATION
  Report Type: 
  Country: None (occurrence: None)
  Receive Date: 20070806
  Receipt Date: 20070726
  Transmission Date: 20080115
  Serious: Yes (Hospitalization)
  Sender: FDA-Public Use
  Company Number: US-JNJFOC-20070704733

PATIENT
  Sex: Female
  Weight: 46.27 kg

DRUGS (4)
  1. REMICADE [Suspect]
     Route: 042
  2. REMICADE [Suspect]
     Indication: RHEUMATOID ARTHRITIS
     Route: 042
  3. PREDNISONE TAB [Concomitant]
  4. METHOTREXATE [Concomitant]

REACTIONS (2)
  - DEPRESSION [None]
  - DISCOMFORT [None]
